FAERS Safety Report 6298452-8 (Version None)
Quarter: 2009Q3

REPORT INFORMATION
  Report Type: 
  Country: None (occurrence: None)
  Receive Date: 20090724
  Receipt Date: 20090423
  Transmission Date: 20100115
  Serious: Yes (Hospitalization)
  Sender: FDA-Public Use
  Company Number: 2009BI001604

PATIENT
  Age: 47 Year
  Sex: Female
  Weight: 102.0593 kg

DRUGS (19)
  1. TYSABRI [Suspect]
     Indication: MULTIPLE SCLEROSIS
     Dosage: 300 MG; QM; IV
     Route: 042
     Dates: start: 20080822
  2. SOLU-MEDROL [Concomitant]
  3. WELLBUTRIN [Concomitant]
  4. ALPRAZOLAM [Concomitant]
  5. BACLOFEN [Concomitant]
  6. TRAMADOL HCL [Concomitant]
  7. AXERT [Concomitant]
  8. ALEVE [Concomitant]
  9. CYCLOBENZAPRINE [Concomitant]
  10. NORTRIPTYLINE HCL [Concomitant]
  11. CENTRUM [Concomitant]
  12. VITAMIN D [Concomitant]
  13. ASPIRIN [Concomitant]
  14. BISACODYL [Concomitant]
  15. DOCUSATE SODIUM [Concomitant]
  16. NITROFURANTOIN [Concomitant]
  17. AMBIEN [Concomitant]
  18. REBIF [Concomitant]
  19. BETASERON [Concomitant]

REACTIONS (9)
  - CATHETER RELATED INFECTION [None]
  - CONSTIPATION [None]
  - DECUBITUS ULCER [None]
  - DIPLOPIA [None]
  - FALL [None]
  - LOSS OF CONTROL OF LEGS [None]
  - OBESITY [None]
  - OEDEMA PERIPHERAL [None]
  - UTERINE LEIOMYOMA [None]
